FAERS Safety Report 9307634 (Version 1)
Quarter: 2013Q2

REPORT INFORMATION
  Report Type: Spontaneous
  Country: US (occurrence: US)
  Receive Date: 20130524
  Receipt Date: 20130524
  Transmission Date: 20140414
  Serious: No
  Sender: FDA-Public Use
  Company Number: US-PFIZER INC-2013154018

PATIENT
  Age: 66 Year
  Sex: Female
  Weight: 62.13 kg

DRUGS (3)
  1. NEURONTIN [Suspect]
     Indication: FIBROMYALGIA
     Dosage: 900 MG, 1X/DAY
  2. NEURONTIN [Suspect]
     Indication: CARPAL TUNNEL SYNDROME
     Dosage: 100 MG, 1X/DAY
  3. IPRATROPIUM BROMIDE [Suspect]
     Indication: DYSPNOEA
     Dosage: UNK, EVERY 4-6 HOURS

REACTIONS (2)
  - Swelling [Recovered/Resolved]
  - Fatigue [Recovered/Resolved]
